FAERS Safety Report 17868077 (Version 5)
Quarter: 2020Q4

REPORT INFORMATION
  Report Type: Other
  Country: US (occurrence: US)
  Receive Date: 20200606
  Receipt Date: 20201001
  Transmission Date: 20210113
  Serious: Yes (Hospitalization, Other)
  Sender: FDA-Public Use
  Company Number: US-ROCHE-2613622

PATIENT
  Sex: Female
  Weight: 81.72 kg

DRUGS (14)
  1. FLUTICASONE. [Concomitant]
     Active Substance: FLUTICASONE
  2. LEVOTHYROXINE. [Concomitant]
     Active Substance: LEVOTHYROXINE
  3. ACTEMRA [Suspect]
     Active Substance: TOCILIZUMAB
  4. ACTEMRA [Suspect]
     Active Substance: TOCILIZUMAB
     Dosage: INJECT 162MG SUBCUTANEOUSLY EVERY OTHER WEEK
     Route: 058
  5. RANITIDINE. [Concomitant]
     Active Substance: RANITIDINE
  6. NAPROXEN. [Concomitant]
     Active Substance: NAPROXEN
     Indication: PRODUCT USED FOR UNKNOWN INDICATION
  7. CLOTRIMAZOLE. [Concomitant]
     Active Substance: CLOTRIMAZOLE
  8. ACTEMRA [Suspect]
     Active Substance: TOCILIZUMAB
  9. DILTIAZEM. [Concomitant]
     Active Substance: DILTIAZEM
  10. ACTEMRA [Suspect]
     Active Substance: TOCILIZUMAB
     Indication: RHEUMATOID ARTHRITIS
     Route: 058
     Dates: start: 20190913
  11. ACTEMRA [Suspect]
     Active Substance: TOCILIZUMAB
  12. ROSUVASTATIN. [Concomitant]
     Active Substance: ROSUVASTATIN
  13. ACTEMRA [Suspect]
     Active Substance: TOCILIZUMAB
  14. METHOTREXATE. [Concomitant]
     Active Substance: METHOTREXATE
     Indication: PRODUCT USED FOR UNKNOWN INDICATION

REACTIONS (5)
  - Cerebrovascular accident [Unknown]
  - Speech disorder [Unknown]
  - Muscular weakness [Unknown]
  - Facial paralysis [Unknown]
  - Amnesia [Unknown]
